FAERS Safety Report 9523002 (Version 3)
Quarter: 2013Q3

REPORT INFORMATION
  Report Type: Report from Study
  Country: GB (occurrence: GB)
  Receive Date: 20130913
  Receipt Date: 20130920
  Transmission Date: 20140515
  Serious: Yes (Hospitalization)
  Sender: FDA-Public Use
  Company Number: GB-BAYER-2013-109844

PATIENT
  Age: 36 Year
  Sex: Male
  Weight: 100.6 kg

DRUGS (2)
  1. SORAFENIB (RAF KINASE INHIBITOR) [Suspect]
     Indication: RENAL CELL CARCINOMA
     Dosage: ACTUAL DOSE GIVEN AT MOST RECENT ADMINISTRATION: 400 MG ALTERNATE DAYS
     Dates: start: 20130131, end: 20130804
  2. RAMIPRIL [Concomitant]
     Dosage: TOTAL DAILY DOSE 5 MG
     Route: 048
     Dates: start: 20130131

REACTIONS (1)
  - Deep vein thrombosis [Not Recovered/Not Resolved]
